FAERS Safety Report 8545263-6 (Version None)
Quarter: 2012Q3

REPORT INFORMATION
  Report Type: 
  Country: None (occurrence: None)
  Receive Date: 20120727
  Receipt Date: 20120718
  Transmission Date: 20120928
  Serious: Yes (Hospitalization, Other)
  Sender: FDA-Public Use
  Company Number: US-BAXTER-2012BAX008117

PATIENT
  Sex: Female

DRUGS (4)
  1. DIANEAL [Suspect]
     Indication: PERITONEAL DIALYSIS
     Dosage: 8.9 LITERS
     Route: 033
     Dates: end: 20120425
  2. DIANEAL LOW CALCIUM W/ DEXTROSE 1.5% [Suspect]
     Indication: PERITONEAL DIALYSIS
     Route: 033
     Dates: end: 20120425
  3. DIANEAL LOW CALCIUM W/ DEXTROSE 1.5% [Suspect]
     Route: 033
     Dates: start: 20120519
  4. DIANEAL [Suspect]
     Route: 033
     Dates: start: 20120519

REACTIONS (5)
  - ABDOMINAL RIGIDITY [None]
  - PULMONARY OEDEMA [None]
  - MUSCLE SPASMS [None]
  - PERITONEAL DISORDER [None]
  - FLUID OVERLOAD [None]
